FAERS Safety Report 14212639 (Version 1)
Quarter: 2017Q4

REPORT INFORMATION
  Report Type: Spontaneous
  Country: CN (occurrence: US)
  Receive Date: 20171121
  Receipt Date: 20171121
  Transmission Date: 20180321
  Serious: Yes (Hospitalization)
  Sender: FDA-Public Use
  Company Number: US-INGENUS PHARMACEUTICALS NJ, LLC-ING201711-000564

PATIENT
  Age: 19 Year
  Sex: Male
  Weight: 59 kg

DRUGS (2)
  1. CHLOROQUINE. [Suspect]
     Active Substance: CHLOROQUINE
     Indication: MALARIA
  2. PRIMAQUINE PHOSPHATE. [Suspect]
     Active Substance: PRIMAQUINE PHOSPHATE
     Indication: MALARIA

REACTIONS (7)
  - Haemolytic anaemia [Recovered/Resolved]
  - Pallor [Recovered/Resolved]
  - Jaundice [Recovered/Resolved]
  - Conjunctival pallor [Recovered/Resolved]
  - Syncope [Recovered/Resolved]
  - Splenomegaly [Recovered/Resolved]
  - Chromaturia [Recovered/Resolved]
